FAERS Safety Report 7676810-4 (Version None)
Quarter: 2011Q3

REPORT INFORMATION
  Report Type: 
  Country: None (occurrence: None)
  Receive Date: 20110811
  Receipt Date: 20110725
  Transmission Date: 20111222
  Serious: No
  Sender: FDA-Public Use
  Company Number: US-B.I. PHARMACEUTICALS,INC./RIDGEFIELD-2011-BP-18428BP

PATIENT
  Sex: Male

DRUGS (8)
  1. DILTIAZEM [Concomitant]
     Indication: ATRIAL FIBRILLATION
     Dosage: 240 MG
     Route: 048
  2. GLYBURIDE [Concomitant]
     Indication: DIABETES MELLITUS
     Dosage: 2.5 MG
     Route: 048
     Dates: end: 20110601
  3. GLYBURIDE [Concomitant]
     Dosage: 7.5 MG
     Route: 048
     Dates: end: 20110701
  4. WARFARIN [Concomitant]
     Indication: ATRIAL FIBRILLATION
     Dosage: 5 MG
     Route: 048
     Dates: start: 20110722
  5. GLYBURIDE [Concomitant]
     Dosage: 5 MG
     Route: 048
  6. SIMVASTATIN [Concomitant]
     Indication: BLOOD CHOLESTEROL
     Dosage: 40 MG
     Route: 048
  7. DIGOXIN [Concomitant]
     Indication: ATRIAL FIBRILLATION
     Dosage: 0.25 MG
     Route: 048
  8. PRADAXA [Suspect]
     Indication: ATRIAL FIBRILLATION
     Dosage: 300 MG
     Route: 048
     Dates: start: 20110515, end: 20110720

REACTIONS (3)
  - DYSPEPSIA [None]
  - BLOOD GLUCOSE INCREASED [None]
  - OESOPHAGEAL SPASM [None]
